FAERS Safety Report 7648305-5 (Version None)
Quarter: 2011Q3

REPORT INFORMATION
  Report Type: 
  Country: None (occurrence: None)
  Receive Date: 20110801
  Receipt Date: 20110725
  Transmission Date: 20111222
  Serious: Yes (Hospitalization)
  Sender: FDA-Public Use
  Company Number: GB-PFIZER INC-2011151210

PATIENT
  Age: 88 Year
  Sex: Female

DRUGS (4)
  1. CELECOXIB [Suspect]
     Indication: OSTEOARTHRITIS
     Dosage: 100 MG, 2X/DAY
     Route: 048
     Dates: start: 20081125, end: 20110125
  2. BENDROFLUMETHIAZIDE [Concomitant]
     Indication: ESSENTIAL HYPERTENSION
     Dosage: 2.5 MG, 1X/DAY
     Dates: start: 19991109, end: 20110125
  3. ADCAL [Concomitant]
     Indication: OSTEOPENIA
     Dosage: UNK
     Dates: start: 20041101
  4. CANDESARTAN [Concomitant]
     Indication: ESSENTIAL HYPERTENSION
     Dosage: 4 MG, 1X/DAY
     Dates: start: 20100531, end: 20110125

REACTIONS (6)
  - ORTHOSTATIC HYPOTENSION [None]
  - PULMONARY HYPERTENSION [None]
  - LACERATION [None]
  - ATRIAL FLUTTER [None]
  - ATRIAL FIBRILLATION [None]
  - FALL [None]
